FAERS Safety Report 15449993 (Version 1)
Quarter: 2018Q3

REPORT INFORMATION
  Report Type: Spontaneous
  Country: US (occurrence: US)
  Receive Date: 20180927
  Receipt Date: 20180927
  Transmission Date: 20181010
  Serious: Yes (Hospitalization)
  Sender: FDA-Public Use
  Company Number: None

PATIENT
  Age: 53 Year
  Sex: Female
  Weight: 98.4 kg

DRUGS (7)
  1. LEVOTHYROXINE. [Concomitant]
     Active Substance: LEVOTHYROXINE
  2. WELLBUTRIN [Concomitant]
     Active Substance: BUPROPION HYDROCHLORIDE
  3. GABAPENTIN. [Concomitant]
     Active Substance: GABAPENTIN
  4. ISOVUE 300 [Suspect]
     Active Substance: IOPAMIDOL
     Indication: SCAN WITH CONTRAST
  5. SEROQUEL [Concomitant]
     Active Substance: QUETIAPINE FUMARATE
  6. XARELTO [Concomitant]
     Active Substance: RIVAROXABAN
  7. PRISTIQ EXTENDED?RELEASE [Concomitant]
     Active Substance: DESVENLAFAXINE SUCCINATE

REACTIONS (5)
  - Urinary incontinence [None]
  - Tachycardia [None]
  - Malaise [None]
  - Hypotension [None]
  - Foaming at mouth [None]

NARRATIVE: CASE EVENT DATE: 20180814
